FAERS Safety Report 7152418-4 (Version None)
Quarter: 2010Q4

REPORT INFORMATION
  Report Type: 
  Country: None (occurrence: None)
  Receive Date: 20101208
  Receipt Date: 20101208
  Transmission Date: 20110411
  Serious: Yes (Hospitalization)
  Sender: FDA-Public Use
  Company Number: None

PATIENT
  Age: 83 Year
  Sex: Male
  Weight: 61 kg

DRUGS (2)
  1. DIGOXIN [Suspect]
     Indication: ATRIAL FIBRILLATION
     Dosage: 0.125 MG EVERYDAY PO
     Route: 048
     Dates: start: 20100901, end: 20101206
  2. AMIODARONE [Suspect]
     Indication: ATRIAL FIBRILLATION
     Dosage: 200 MG EVERYDAY PO
     Route: 048
     Dates: start: 20100901, end: 20101206

REACTIONS (3)
  - BRADYCARDIA [None]
  - DIZZINESS [None]
  - FATIGUE [None]
